FAERS Safety Report 7046297-3 (Version None)
Quarter: 2010Q4

REPORT INFORMATION
  Report Type: 
  Country: None (occurrence: None)
  Receive Date: 20101014
  Receipt Date: 20101004
  Transmission Date: 20110411
  Serious: Yes (Other)
  Sender: FDA-Public Use
  Company Number: B0677558A

PATIENT
  Age: 91 Year
  Sex: Male
  Weight: 72 kg

DRUGS (4)
  1. ARIXTRA [Suspect]
     Indication: ATRIAL FIBRILLATION
     Dosage: 2.5MG PER DAY
     Route: 058
     Dates: start: 20100803, end: 20100817
  2. CITALOPRAM HYDROBROMIDE [Concomitant]
     Dosage: 20MG PER DAY
     Route: 042
     Dates: start: 20100816, end: 20100822
  3. OSMOTAN [Concomitant]
     Route: 065
  4. PERFALGAN [Concomitant]
     Route: 065

REACTIONS (4)
  - HEPATIC FUNCTION ABNORMAL [None]
  - MELAENA [None]
  - OFF LABEL USE [None]
  - RENAL IMPAIRMENT [None]
